FAERS Safety Report 26192793 (Version 1)
Quarter: 2025Q4

REPORT INFORMATION
  Report Type: Spontaneous
  Country: US (occurrence: US)
  Receive Date: 20251223
  Receipt Date: 20251223
  Transmission Date: 20260117
  Serious: Yes (Hospitalization)
  Sender: DR REDDYS
  Company Number: US-DRL-USA-USA/2025/12/019479

PATIENT
  Age: 31 Year
  Sex: Female

DRUGS (8)
  1. DOXYCYCLINE [Suspect]
     Active Substance: DOXYCYCLINE
     Indication: Staphylococcal bacteraemia
     Dosage: 100 MG TWICE?DAILY
  2. DOXYCYCLINE [Suspect]
     Active Substance: DOXYCYCLINE
  3. CEFADROXIL [Concomitant]
     Active Substance: CEFADROXIL
     Indication: Staphylococcal bacteraemia
     Dosage: 500 MG TWICE DAILY
  4. CEFADROXIL [Concomitant]
     Active Substance: CEFADROXIL
  5. NALTREXONE [Concomitant]
     Active Substance: NALTREXONE
     Indication: Product used for unknown indication
  6. SACUBITRIL\VALSARTAN [Concomitant]
     Active Substance: SACUBITRIL\VALSARTAN
     Indication: Product used for unknown indication
  7. SPIRONOLACTONE [Concomitant]
     Active Substance: SPIRONOLACTONE
     Indication: Product used for unknown indication
  8. WARFARIN [Concomitant]
     Active Substance: WARFARIN
     Indication: Product used for unknown indication

REACTIONS (1)
  - Drug ineffective for unapproved indication [Unknown]
